FAERS Safety Report 5110216-7 (Version None)
Quarter: 2006Q3

REPORT INFORMATION
  Report Type: 
  Country: None (occurrence: None)
  Receive Date: 20060921
  Receipt Date: 20060914
  Transmission Date: 20061208
  Serious: Yes (Disabling)
  Sender: FDA-Public Use
  Company Number: 2006UW18088

PATIENT
  Age: 33 Year
  Sex: Female

DRUGS (5)
  1. SEROQUEL [Suspect]
     Route: 048
  2. SEROQUEL [Suspect]
     Route: 048
  3. WELLBUTRIN XL [Concomitant]
  4. LITHIUM CARBONATE [Concomitant]
  5. KLONAPIN [Concomitant]

REACTIONS (6)
  - DRUG DEPENDENCE [None]
  - DRUG WITHDRAWAL SYNDROME [None]
  - HALLUCINATION, AUDITORY [None]
  - MEMORY IMPAIRMENT [None]
  - NAUSEA [None]
  - SLEEP DISORDER [None]
